FAERS Safety Report 12427168 (Version 1)
Quarter: 2016Q2

REPORT INFORMATION
  Report Type: Spontaneous
  Country: FR (occurrence: FR)
  Receive Date: 20160601
  Receipt Date: 20160601
  Transmission Date: 20160815
  Serious: Yes (Death, Hospitalization, Other)
  Sender: FDA-Public Use
  Company Number: FR-BRISTOL-MYERS SQUIBB COMPANY-BMS-2014-008191

PATIENT
  Age: 49 Year
  Sex: Female
  Weight: 72 kg

DRUGS (1)
  1. ORENCIA [Suspect]
     Active Substance: ABATACEPT
     Indication: RHEUMATOID ARTHRITIS
     Dosage: 10 MG/KG, QMO
     Route: 042
     Dates: start: 200805, end: 20160313

REACTIONS (10)
  - Jaundice [Fatal]
  - Transfusion [Unknown]
  - Multiple organ dysfunction syndrome [Fatal]
  - Osteomyelitis [Recovered/Resolved]
  - Anaemia [Unknown]
  - Haemodialysis [Unknown]
  - Hepatic cancer [Fatal]
  - Haemorrhagic disorder [Fatal]
  - Prerenal failure [Recovered/Resolved]
  - Lactic acidosis [Unknown]

NARRATIVE: CASE EVENT DATE: 201309
